APPROVED DRUG PRODUCT: AMLODIPINE BESYLATE AND VALSARTAN
Active Ingredient: AMLODIPINE BESYLATE; VALSARTAN
Strength: EQ 5MG BASE;320MG
Dosage Form/Route: TABLET;ORAL
Application: A202829 | Product #003 | TE Code: AB
Applicant: NOVEL LABORATORIES INC
Approved: Mar 30, 2015 | RLD: No | RS: No | Type: RX